FAERS Safety Report 11691267 (Version 2)
Quarter: 2015Q4

REPORT INFORMATION
  Report Type: Spontaneous
  Country: IT (occurrence: IT)
  Receive Date: 20151102
  Receipt Date: 20151111
  Transmission Date: 20160304
  Serious: Yes (Hospitalization)
  Sender: FDA-Public Use
  Company Number: IT-BAYER-2015-455035

PATIENT
  Age: 81 Year
  Sex: Female

DRUGS (13)
  1. TAVOR [LORAZEPAM] [Concomitant]
     Active Substance: LORAZEPAM
     Route: 048
  2. PANTOPRAZOLE SODIUM. [Interacting]
     Active Substance: PANTOPRAZOLE SODIUM
     Dosage: DAILY DOSE 80 MG
     Route: 048
  3. CARDIOASPIRIN [Suspect]
     Active Substance: ASPIRIN
     Route: 048
  4. CORDARONE [Interacting]
     Active Substance: AMIODARONE HYDROCHLORIDE
     Route: 048
  5. TORVAST [Concomitant]
     Active Substance: ATORVASTATIN
     Route: 048
  6. LANOXIN [Concomitant]
     Active Substance: DIGOXIN
     Route: 048
  7. COUMADIN [Interacting]
     Active Substance: WARFARIN SODIUM
     Route: 048
  8. CLEXANE [Interacting]
     Active Substance: ENOXAPARIN SODIUM
     Route: 058
  9. BISOPROLOL FUMARATE. [Concomitant]
     Active Substance: BISOPROLOL FUMARATE
     Route: 048
  10. LASIX [Concomitant]
     Active Substance: FUROSEMIDE
     Dosage: DAILY DOSE 125 MG
     Route: 048
  11. KANRENOL [Concomitant]
     Active Substance: CANRENOATE POTASSIUM
     Dosage: DAILY DOSE 50 MG
     Route: 048
  12. ENAPREN [Concomitant]
     Active Substance: ENALAPRIL MALEATE
     Route: 048
  13. TARGIN [Concomitant]
     Active Substance: NALOXONE HYDROCHLORIDE\OXYCODONE HYDROCHLORIDE
     Dosage: DAILY DOSE 2 DF
     Route: 048

REACTIONS (4)
  - International normalised ratio increased [Recovering/Resolving]
  - Overdose [Recovering/Resolving]
  - Drug interaction [Recovering/Resolving]
  - Haematuria [Recovering/Resolving]

NARRATIVE: CASE EVENT DATE: 20150825
